FAERS Safety Report 10076171 (Version 3)
Quarter: 2014Q4

REPORT INFORMATION
  Report Type: Spontaneous
  Country: US (occurrence: US)
  Receive Date: 20140414
  Receipt Date: 20141124
  Transmission Date: 20150528
  Serious: Yes (Hospitalization)
  Sender: FDA-Public Use
  Company Number: US-BAYER-2014-053565

PATIENT
  Age: 29 Year
  Sex: Female

DRUGS (15)
  1. YAZ [Suspect]
     Active Substance: DROSPIRENONE\ETHINYL ESTRADIOL
     Indication: CONTRACEPTION
  2. LANTUS [Concomitant]
     Active Substance: INSULIN GLARGINE
     Dosage: 50 U, UNK
     Route: 058
     Dates: start: 20080725
  3. INSULIN [Concomitant]
     Active Substance: INSULIN NOS
  4. OXYCONTIN [Concomitant]
     Active Substance: OXYCODONE HYDROCHLORIDE
  5. YASMIN [Suspect]
     Active Substance: DROSPIRENONE\ETHINYL ESTRADIOL
  6. LISINOPRIL. [Concomitant]
     Active Substance: LISINOPRIL
     Indication: HYPERTENSION
     Dosage: 10 MG, QD
     Route: 048
     Dates: start: 20080725
  7. DILAUDID [Concomitant]
     Active Substance: HYDROMORPHONE HYDROCHLORIDE
  8. TREXIMET [Concomitant]
     Active Substance: NAPROXEN SODIUM\SUMATRIPTAN SUCCINATE
     Dosage: 85-500 MG
  9. TYLENOL COLD MULTI-SYMPTOM SEVERE [Concomitant]
     Active Substance: ACETAMINOPHEN\DEXTROMETHORPHAN HYDROBROMIDE\GUAIFENESIN\PHENYLEPHRINE HYDROCHLORIDE
     Indication: BREAKTHROUGH PAIN
     Dosage: ONE TO TWO TABLETS P.O. EVERY 6 HOURS P.R.N
  10. CODEINE [Concomitant]
     Active Substance: CODEINE
  11. LANTUS [Concomitant]
     Active Substance: INSULIN GLARGINE
     Dosage: UNK
     Dates: start: 20080904
  12. OXYCODONE [Concomitant]
     Active Substance: OXYCODONE
  13. APIDRA [Concomitant]
     Active Substance: INSULIN GLULISINE
     Dosage: UNK
     Dates: start: 20080725
  14. DURAGESIC [Concomitant]
     Active Substance: FENTANYL
     Dosage: 12.5 MCG EVERY 72 HOURS, PRN
  15. OMEGA 3 FATTY ACIDS [Concomitant]
     Active Substance: OMEGA-3 FATTY ACIDS

REACTIONS (2)
  - Superior sagittal sinus thrombosis [Recovered/Resolved]
  - Transverse sinus thrombosis [Recovered/Resolved]

NARRATIVE: CASE EVENT DATE: 200809
